FAERS Safety Report 16458009 (Version 2)
Quarter: 2019Q2

REPORT INFORMATION
  Report Type: Spontaneous
  Country: US (occurrence: US)
  Receive Date: 20190620
  Receipt Date: 20190628
  Transmission Date: 20190711
  Serious: No
  Sender: FDA-Public Use
  Company Number: US-PFIZER INC-2019262826

PATIENT
  Age: 72 Year
  Sex: Female

DRUGS (9)
  1. PRAVACHOL [Suspect]
     Active Substance: PRAVASTATIN SODIUM
     Dosage: UNK
  2. AVELOX [Suspect]
     Active Substance: MOXIFLOXACIN HYDROCHLORIDE
     Dosage: UNK
  3. BACTRIM [Suspect]
     Active Substance: SULFAMETHOXAZOLE\TRIMETHOPRIM
     Dosage: UNK
  4. ADVAIR HFA [Suspect]
     Active Substance: FLUTICASONE PROPIONATE\SALMETEROL XINAFOATE
     Dosage: UNK
  5. DIOVAN [Suspect]
     Active Substance: VALSARTAN
     Dosage: UNK
  6. HUMIBID [Suspect]
     Active Substance: GUAIFENESIN
     Dosage: UNK
  7. TEKTURNA [Suspect]
     Active Substance: ALISKIREN HEMIFUMARATE
     Dosage: UNK
  8. CADUET [Suspect]
     Active Substance: AMLODIPINE BESYLATE\ATORVASTATIN CALCIUM
     Dosage: UNK
  9. ATENOLOL. [Suspect]
     Active Substance: ATENOLOL
     Dosage: UNK

REACTIONS (1)
  - Drug hypersensitivity [Unknown]
